FAERS Safety Report 12548294 (Version 4)
Quarter: 2016Q3

REPORT INFORMATION
  Report Type: Spontaneous
  Country: GB (occurrence: GB)
  Receive Date: 20160712
  Receipt Date: 20160809
  Transmission Date: 20161109
  Serious: Yes (Hospitalization, Other)
  Sender: FDA-Public Use
  Company Number: GB-ORION CORPORATION ORION PHARMA-ENTC2016-0370

PATIENT
  Age: 54 Year
  Sex: Male

DRUGS (19)
  1. PAROXETINE HYDROCHLORIDE. [Suspect]
     Active Substance: PAROXETINE HYDROCHLORIDE
     Route: 048
     Dates: start: 20011129
  2. SEROXAT [Suspect]
     Active Substance: PAROXETINE HYDROCHLORIDE
     Route: 048
     Dates: start: 20011116
  3. AMITRIPTYLINE [Concomitant]
     Active Substance: AMITRIPTYLINE
     Route: 065
     Dates: start: 200805
  4. MIRTAZAPINE. [Suspect]
     Active Substance: MIRTAZAPINE
     Route: 065
     Dates: start: 200202
  5. PAROXETINE HYDROCHLORIDE. [Suspect]
     Active Substance: PAROXETINE HYDROCHLORIDE
     Route: 048
     Dates: start: 20111106
  6. SEROXAT [Suspect]
     Active Substance: PAROXETINE HYDROCHLORIDE
     Route: 048
     Dates: start: 2001
  7. SEROXAT [Suspect]
     Active Substance: PAROXETINE HYDROCHLORIDE
     Route: 048
     Dates: start: 20011211, end: 20011217
  8. SEROXAT [Suspect]
     Active Substance: PAROXETINE HYDROCHLORIDE
     Route: 048
     Dates: start: 20011129
  9. PAROXETINE HYDROCHLORIDE. [Suspect]
     Active Substance: PAROXETINE HYDROCHLORIDE
     Indication: DEPRESSION
     Route: 048
     Dates: start: 20011017, end: 20011211
  10. FLUOXETINE [Concomitant]
     Active Substance: FLUOXETINE HYDROCHLORIDE
     Route: 065
  11. PROPRANOLOL [Concomitant]
     Active Substance: PROPRANOLOL\PROPRANOLOL HYDROCHLORIDE
     Route: 065
     Dates: start: 200007
  12. PAXIL [Suspect]
     Active Substance: PAROXETINE HYDROCHLORIDE
     Indication: DEPRESSION
     Route: 048
     Dates: start: 200007, end: 20011217
  13. SEROXAT [Suspect]
     Active Substance: PAROXETINE HYDROCHLORIDE
     Indication: DEPRESSION
     Route: 048
     Dates: start: 200007
  14. SINEMET PLUS [Concomitant]
     Active Substance: CARBIDOPA\LEVODOPA
     Dosage: 1 1/2 TABLETS
     Route: 065
  15. SEROXAT [Suspect]
     Active Substance: PAROXETINE HYDROCHLORIDE
     Route: 048
     Dates: start: 20011106
  16. DIAZEPAM. [Concomitant]
     Active Substance: DIAZEPAM
     Indication: DEPRESSION
     Dosage: STRENGTH: 2 MG/5 MG
     Route: 065
     Dates: start: 20011101
  17. DIAZEPAM. [Concomitant]
     Active Substance: DIAZEPAM
     Route: 065
     Dates: start: 20011129
  18. GAMANIL [Concomitant]
     Indication: DEPRESSION
     Route: 065
     Dates: start: 20011201, end: 200201
  19. STALEVO [Suspect]
     Active Substance: CARBIDOPA\ENTACAPONE\LEVODOPA
     Indication: PARKINSON^S DISEASE
     Route: 065

REACTIONS (5)
  - Nightmare [Unknown]
  - Hallucination [Unknown]
  - Abnormal dreams [Unknown]
  - Intrusive thoughts [Unknown]
  - Anxiety [Unknown]

NARRATIVE: CASE EVENT DATE: 200409
